FAERS Safety Report 21714919 (Version 1)
Quarter: 2022Q4

REPORT INFORMATION
  Report Type: Spontaneous
  Country: US (occurrence: None)
  Receive Date: 20221209
  Receipt Date: 20221209
  Transmission Date: 20230113
  Serious: Yes (Hospitalization)
  Sender: FDA-Public Use
  Company Number: None

PATIENT
  Age: 33 Year
  Sex: Male

DRUGS (11)
  1. OPSUMIT [Suspect]
     Active Substance: MACITENTAN
     Indication: Heritable pulmonary arterial hypertension
     Dosage: 10MG QD ORAL?
     Route: 048
     Dates: start: 20211104
  2. SILDENAFIL [Concomitant]
     Active Substance: SILDENAFIL
  3. MODAFINIL [Concomitant]
     Active Substance: MODAFINIL
  4. CITALOPRAM [Concomitant]
     Active Substance: CITALOPRAM HYDROBROMIDE
  5. LISINOPRIL [Concomitant]
     Active Substance: LISINOPRIL
  6. LEVOCETIRIZINE [Concomitant]
     Active Substance: LEVOCETIRIZINE
  7. FUROSEMIDE [Concomitant]
     Active Substance: FUROSEMIDE
  8. ASCORBIC ACID\IRON [Concomitant]
     Active Substance: ASCORBIC ACID\IRON
  9. AZELASTINE [Concomitant]
     Active Substance: AZELASTINE
  10. FLONASE [Concomitant]
     Active Substance: FLUTICASONE PROPIONATE
  11. VENOFER [Concomitant]
     Active Substance: IRON SUCROSE

REACTIONS (2)
  - Acute respiratory failure [None]
  - Pneumonia [None]

NARRATIVE: CASE EVENT DATE: 20221110
